FAERS Safety Report 9928560 (Version 3)
Quarter: 2014Q2

REPORT INFORMATION
  Report Type: Spontaneous
  Country: IT (occurrence: IT)
  Receive Date: 20140227
  Receipt Date: 20140530
  Transmission Date: 20141212
  Serious: Yes (Other)
  Sender: FDA-Public Use
  Company Number: IT-ROCHE-1357146

PATIENT
  Age: 57 Year
  Sex: Male

DRUGS (10)
  1. SOMATROPIN [Suspect]
     Indication: GROWTH HORMONE DEFICIENCY
     Route: 058
     Dates: start: 20030301, end: 20140127
  2. TESTOSTERONE ENANTHATE [Suspect]
     Indication: SECONDARY HYPOGONADISM
     Route: 030
     Dates: start: 20030101, end: 20140127
  3. CORTONE [Concomitant]
     Route: 048
  4. CARDIRENE [Concomitant]
     Route: 048
  5. LEVETIRACETAM [Concomitant]
     Route: 048
  6. EUTIROX [Concomitant]
     Route: 048
  7. MINIRIN [Concomitant]
     Route: 065
  8. DIBASE [Concomitant]
     Route: 065
  9. CITALOPRAM [Concomitant]
     Dosage: 5 DROPS DAILY (5 DOSAGE FORMS,1 IN 1 D)
     Route: 065
  10. TRIATEC (ITALY) [Concomitant]

REACTIONS (2)
  - Prostate cancer [Unknown]
  - Prostatic dysplasia [Unknown]
